FAERS Safety Report 16386554 (Version 2)
Quarter: 2019Q2

REPORT INFORMATION
  Report Type: Spontaneous
  Country: BR (occurrence: BR)
  Receive Date: 20190604
  Receipt Date: 20190610
  Transmission Date: 20190711
  Serious: Yes (Hospitalization, Other)
  Sender: FDA-Public Use
  Company Number: BR-AMGEN-BRASP2019087673

PATIENT
  Sex: Female

DRUGS (1)
  1. ENBREL [Suspect]
     Active Substance: ETANERCEPT
     Indication: RHEUMATOID ARTHRITIS
     Dosage: UNK
     Route: 065
     Dates: start: 2017, end: 201804

REACTIONS (5)
  - Carditis [Unknown]
  - Pericardial effusion [Unknown]
  - Drug intolerance [Unknown]
  - Pericarditis [Unknown]
  - Kidney infection [Unknown]
